FAERS Safety Report 5025221-9 (Version None)
Quarter: 2006Q2

REPORT INFORMATION
  Report Type: 
  Country: None (occurrence: None)
  Receive Date: 20060426
  Receipt Date: 20060130
  Transmission Date: 20061013
  Serious: Yes (Other)
  Sender: FDA-Public Use
  Company Number: 2006015074

PATIENT
  Age: 63 Year
  Sex: Male

DRUGS (6)
  1. LYRICA [Suspect]
     Indication: PAIN IN EXTREMITY
     Dates: start: 20051101, end: 20060101
  2. PROBENECID [Concomitant]
  3. WARFARIN (WARFARIN) [Concomitant]
  4. LIPITOR [Concomitant]
  5. PREVACID [Concomitant]
  6. ALTACE [Concomitant]

REACTIONS (10)
  - ADVERSE DRUG REACTION [None]
  - CARPAL TUNNEL SYNDROME [None]
  - CHILLS [None]
  - DIFFICULTY IN WALKING [None]
  - FATIGUE [None]
  - GOUT [None]
  - HOT FLUSH [None]
  - HYPERHIDROSIS [None]
  - INSOMNIA [None]
  - WEIGHT DECREASED [None]
